FAERS Safety Report 19148201 (Version 3)
Quarter: 2021Q2

REPORT INFORMATION
  Report Type: Spontaneous
  Country: JP (occurrence: JP)
  Receive Date: 20210416
  Receipt Date: 20210503
  Transmission Date: 20210717
  Serious: Yes (Hospitalization, Other)
  Sender: FDA-Public Use
  Company Number: JP-PFIZER INC-2021389769

PATIENT
  Age: 11 Year
  Sex: Female
  Weight: 28.8 kg

DRUGS (9)
  1. SOLU?MEDROL [Suspect]
     Active Substance: METHYLPREDNISOLONE SODIUM SUCCINATE
     Indication: CHEMOTHERAPY SIDE EFFECT PROPHYLAXIS
     Dosage: 60 MG, 2X/DAY
     Route: 041
     Dates: start: 20191015, end: 20191017
  2. FLUCONAZOL [Concomitant]
     Active Substance: FLUCONAZOLE
     Indication: ANTIFUNGAL PROPHYLAXIS
     Dosage: 100 MG, 1X/DAY
     Route: 048
     Dates: start: 20191014, end: 20191018
  3. FEBURIC [Concomitant]
     Active Substance: FEBUXOSTAT
     Indication: HYPERURICAEMIA
     Dosage: 30 MG, 1X/DAY
     Route: 048
     Dates: start: 20191011, end: 20191018
  4. PREDNISOLONE. [Suspect]
     Active Substance: PREDNISOLONE
     Indication: B-CELL TYPE ACUTE LEUKAEMIA
     Dosage: 10 MG, 3X/DAY
     Route: 048
     Dates: start: 20191012, end: 20191014
  5. CYTARABINE. [Suspect]
     Active Substance: CYTARABINE
     Indication: B-CELL TYPE ACUTE LEUKAEMIA
     Dosage: 2000 MG, 1X/DAY
     Route: 041
     Dates: start: 20191015, end: 20191016
  6. FLUDARABIN [Suspect]
     Active Substance: FLUDARABINE PHOSPHATE
     Indication: B-CELL TYPE ACUTE LEUKAEMIA
     Dosage: 30 MG, 1X/DAY
     Route: 041
     Dates: start: 20191015, end: 20191016
  7. NEXIUM [Concomitant]
     Active Substance: ESOMEPRAZOLE MAGNESIUM
     Indication: PROPHYLAXIS AGAINST GASTROINTESTINAL ULCER
     Dosage: 10 MG, 1X/DAY
     Route: 048
     Dates: start: 20191011, end: 20191018
  8. DAIPHEN [Concomitant]
     Active Substance: SULFAMETHOXAZOLE\TRIMETHOPRIM
     Indication: ANTIFUNGAL PROPHYLAXIS
     Dosage: 1 DF, 1X/DAY
     Route: 048
     Dates: start: 20191014, end: 20200108
  9. MAGNESIUM OXIDE. [Concomitant]
     Active Substance: MAGNESIUM OXIDE
     Indication: CONSTIPATION
     Dosage: 0.33 G, 3X/DAY
     Route: 048
     Dates: start: 20191016, end: 20191022

REACTIONS (3)
  - Off label use [Unknown]
  - Pneumonia [Unknown]
  - Bacteraemia [Unknown]
